FAERS Safety Report 14843240 (Version 1)
Quarter: 2018Q2

REPORT INFORMATION
  Report Type: Other
  Country: RO (occurrence: RO)
  Receive Date: 20180503
  Receipt Date: 20180503
  Transmission Date: 20180711
  Serious: Yes (Other)
  Sender: FDA-Public Use
  Company Number: RO-IMPAX LABORATORIES, INC-2018-IPXL-01533

PATIENT
  Age: 7 Year
  Sex: Male

DRUGS (2)
  1. ALBENZA [Suspect]
     Active Substance: ALBENDAZOLE
     Indication: GIARDIASIS
     Dosage: 10 ML, DAILY
     Route: 048
     Dates: start: 20180209, end: 20180211
  2. ALBENZA [Suspect]
     Active Substance: ALBENDAZOLE
     Indication: PRODUCT USE IN UNAPPROVED INDICATION

REACTIONS (5)
  - Abdominal pain [Recovered/Resolved]
  - Rectal haemorrhage [Recovered/Resolved]
  - Rash macular [Recovered/Resolved]
  - Product use in unapproved indication [Unknown]
  - Diarrhoea [Recovered/Resolved]

NARRATIVE: CASE EVENT DATE: 20180211
